FAERS Safety Report 9322021 (Version 1)
Quarter: 2013Q2

REPORT INFORMATION
  Report Type: Spontaneous
  Country: GB (occurrence: None)
  Receive Date: 20130529
  Receipt Date: 20130529
  Transmission Date: 20140414
  Serious: Yes (Other)
  Sender: FDA-Public Use
  Company Number: AUR-APL-2013-04301

PATIENT
  Age: 34 Year
  Sex: Female

DRUGS (2)
  1. CITALOPRAM (CITALOPRAM) [Suspect]
     Indication: PRODUCT USED FOR UNKNOWN INDICATION
  2. AMITRIPTYLINE (AMITRIPTYLINE) [Suspect]
     Indication: PRODUCT USED FOR UNKNOWN INDICATION

REACTIONS (11)
  - Overdose [None]
  - Unresponsive to stimuli [None]
  - Grand mal convulsion [None]
  - Blood pressure decreased [None]
  - Cardiac arrest [None]
  - Ventricular tachycardia [None]
  - Metabolic acidosis [None]
  - Bradycardia [None]
  - Electrocardiogram QRS complex prolonged [None]
  - Electrocardiogram QT prolonged [None]
  - Ventricular extrasystoles [None]
